FAERS Safety Report 9330824 (Version 1)
Quarter: 2013Q2

REPORT INFORMATION
  Report Type: Spontaneous
  Country: IQ (occurrence: IQ)
  Receive Date: 20130605
  Receipt Date: 20130605
  Transmission Date: 20140414
  Serious: Yes (Life-Threatening, Hospitalization, Other)
  Sender: FDA-Public Use
  Company Number: PHHY2013IQ055903

PATIENT
  Age: 19 Year
  Sex: Male
  Weight: 60 kg

DRUGS (3)
  1. EXJADE [Suspect]
     Dosage: 30 MG/KG, DAILY
     Dates: start: 20110602, end: 20120210
  2. FOLIC ACID [Concomitant]
     Dosage: 5 MG, ONCE A DAY
     Dates: start: 1994
  3. CALCIUM [Concomitant]
     Dosage: 500 MG, ONCE A DAY
     Route: 048
     Dates: start: 2001

REACTIONS (6)
  - Metabolic acidosis [Recovered/Resolved]
  - Oliguria [Recovered/Resolved]
  - Pallor [Recovered/Resolved]
  - Renal failure acute [Recovered/Resolved]
  - Nausea [Recovered/Resolved]
  - Respiratory acidosis [Unknown]
